FAERS Safety Report 21296717 (Version 1)
Quarter: 2022Q3

REPORT INFORMATION
  Report Type: Spontaneous
  Country: US (occurrence: None)
  Receive Date: 20220902
  Receipt Date: 20220902
  Transmission Date: 20221027
  Serious: Yes (Other)
  Sender: FDA-Public Use
  Company Number: None

PATIENT
  Age: 43 Year
  Sex: Female
  Weight: 113 kg

DRUGS (1)
  1. BEBTELOVIMAB [Suspect]
     Active Substance: BEBTELOVIMAB
     Indication: COVID-19
     Route: 042
     Dates: start: 20220712, end: 20220712

REACTIONS (7)
  - Hypoaesthesia oral [None]
  - Erythema [None]
  - Erythema [None]
  - Erythema [None]
  - Hypoaesthesia oral [None]
  - Headache [None]
  - Burning sensation [None]

NARRATIVE: CASE EVENT DATE: 20220712
